FAERS Safety Report 4746402-5 (Version None)
Quarter: 2005Q3

REPORT INFORMATION
  Report Type: 
  Country: None (occurrence: None)
  Receive Date: 20050815
  Receipt Date: 20050803
  Transmission Date: 20060218
  Serious: Yes (Death, Other)
  Sender: FDA-Public Use
  Company Number: CA_050708462

PATIENT
  Age: 35 Year
  Sex: Female

DRUGS (1)
  1. XIGRIS [Suspect]
     Dosage: 15 ML
     Dates: start: 20050701

REACTIONS (1)
  - DRUG PRESCRIBING ERROR [None]
